FAERS Safety Report 24001213 (Version 1)
Quarter: 2024Q2

REPORT INFORMATION
  Report Type: Other
  Country: IN (occurrence: None)
  Receive Date: 20240621
  Receipt Date: 20240621
  Transmission Date: 20240716
  Serious: Yes (Life-Threatening, Hospitalization, Other)
  Sender: FDA-Public Use
  Company Number: IN-Invatech-000344

PATIENT
  Age: 36 Year
  Sex: Female

DRUGS (6)
  1. CYPROHEPTADINE [Suspect]
     Active Substance: CYPROHEPTADINE
     Indication: Serotonin syndrome
  2. TOPIRAMATE [Concomitant]
     Active Substance: TOPIRAMATE
     Indication: Migraine
  3. AMITRIPTYLINE [Concomitant]
     Active Substance: AMITRIPTYLINE
     Indication: Migraine
  4. CYPROHEPTADINE [Suspect]
     Active Substance: CYPROHEPTADINE
     Indication: Serotonin syndrome
     Dosage: 2 MG TID (THREE TIMES A DAY)
  5. CYPROHEPTADINE [Suspect]
     Active Substance: CYPROHEPTADINE
     Indication: Serotonin syndrome
     Dosage: 2 MG TID (THREE TIMES A DAY)
  6. CYPROHEPTADINE [Suspect]
     Active Substance: CYPROHEPTADINE
     Indication: Serotonin syndrome
     Dosage: 4 MG TID (THREE TIMES A DAY)

REACTIONS (4)
  - Serotonin syndrome [Recovered/Resolved]
  - Condition aggravated [Recovered/Resolved]
  - Symptom recurrence [Recovered/Resolved]
  - Sedation [Unknown]
